FAERS Safety Report 5447167-4 (Version None)
Quarter: 2007Q3

REPORT INFORMATION
  Report Type: 
  Country: None (occurrence: None)
  Receive Date: 20070910
  Receipt Date: 20070829
  Transmission Date: 20080115
  Serious: Yes (Hospitalization, Other)
  Sender: FDA-Public Use
  Company Number: PHFR2007GB02642

PATIENT
  Sex: Female

DRUGS (1)
  1. ZOMETA [Suspect]
     Indication: BREAST CANCER
     Dosage: UNK, QMO
     Dates: start: 20050101, end: 20070401

REACTIONS (7)
  - ALOPECIA [None]
  - NAIL GROWTH ABNORMAL [None]
  - RASH GENERALISED [None]
  - SCLERODERMA [None]
  - SKIN ATROPHY [None]
  - SKIN DISORDER [None]
  - SKIN ULCER [None]
